FAERS Safety Report 4755885-6 (Version None)
Quarter: 2005Q3

REPORT INFORMATION
  Report Type: 
  Country: None (occurrence: None)
  Receive Date: 20050830
  Receipt Date: 20050720
  Transmission Date: 20060218
  Serious: Yes (Other)
  Sender: FDA-Public Use
  Company Number: US-BRISTOL-MYERS SQUIBB COMPANY-13045216

PATIENT
  Age: 58 Year
  Sex: Female
  Weight: 90 kg

DRUGS (11)
  1. ERBITUX [Suspect]
     Indication: COLORECTAL CANCER
     Route: 042
  2. BENADRYL [Concomitant]
     Indication: PREMEDICATION
     Route: 042
     Dates: start: 20050720, end: 20050720
  3. DECADRON [Concomitant]
     Indication: PREMEDICATION
     Route: 042
  4. AMBIEN [Concomitant]
  5. DITROPAN XL [Concomitant]
  6. FOLIC ACID [Concomitant]
  7. HYDROCODONE [Concomitant]
  8. K-DUR 10 [Concomitant]
  9. LIPITOR [Concomitant]
  10. PROTONIX [Concomitant]
  11. ZOLOFT [Concomitant]

REACTIONS (3)
  - CHILLS [None]
  - DERMATITIS ACNEIFORM [None]
  - PYREXIA [None]
